FAERS Safety Report 15540367 (Version 1)
Quarter: 2018Q4

REPORT INFORMATION
  Report Type: Spontaneous
  Country: US (occurrence: US)
  Receive Date: 20181022
  Receipt Date: 20181022
  Transmission Date: 20190205
  Serious: Yes (Other)
  Sender: FDA-Public Use
  Company Number: None

PATIENT
  Age: 57 Year
  Sex: Male
  Weight: 81.5 kg

DRUGS (1)
  1. OMNIPAQUE [Suspect]
     Active Substance: IOHEXOL
     Indication: ANGIOGRAM
     Dosage: ?          OTHER FREQUENCY:ONE TIME;?
     Route: 013
     Dates: start: 20181019, end: 20181019

REACTIONS (1)
  - Urticaria [None]

NARRATIVE: CASE EVENT DATE: 20181019
